FAERS Safety Report 5585050-4 (Version None)
Quarter: 2008Q1

REPORT INFORMATION
  Report Type: 
  Country: None (occurrence: None)
  Receive Date: 20080109
  Receipt Date: 20080108
  Transmission Date: 20080703
  Serious: Yes (Hospitalization)
  Sender: FDA-Public Use
  Company Number: US-BRISTOL-MYERS SQUIBB COMPANY-13858840

PATIENT
  Age: 71 Year
  Sex: Female

DRUGS (2)
  1. TEQUIN [Suspect]
     Indication: URINARY TRACT INFECTION
  2. TEQUIN [Suspect]
     Indication: UPPER RESPIRATORY TRACT INFECTION

REACTIONS (1)
  - HYPOGLYCAEMIA [None]
